FAERS Safety Report 9132904 (Version 3)
Quarter: 2013Q2

REPORT INFORMATION
  Report Type: Spontaneous
  Country: FR (occurrence: FR)
  Receive Date: 20130301
  Receipt Date: 20130610
  Transmission Date: 20140414
  Serious: Yes (Hospitalization)
  Sender: FDA-Public Use
  Company Number: FR-VERTEX PHARMACEUTICALS INC.-2013-002939

PATIENT
  Age: 52 Year
  Sex: Male

DRUGS (6)
  1. INCIVO [Suspect]
     Indication: HEPATITIS C
     Dosage: 750 MG, TID
     Route: 048
     Dates: start: 20121001, end: 20121221
  2. PEG INTERFERON [Suspect]
     Indication: HEPATITIS C
     Dosage: DOSAGE FORM: UNSPECIFIED
     Route: 042
     Dates: start: 20121001, end: 20130318
  3. RIBAVIRIN [Suspect]
     Indication: HEPATITIS C
     Dosage: DOSAGE FORM: UNSPECIFIED
     Route: 048
     Dates: start: 20121001, end: 20130318
  4. DEXERYL [Concomitant]
     Indication: PRURITUS
     Dates: start: 20121128, end: 20130318
  5. TEMESTA [Concomitant]
     Indication: INSOMNIA
     Dates: start: 20121128, end: 20130318
  6. EPOETIN NOS [Concomitant]
     Dates: end: 20130318

REACTIONS (1)
  - Rash generalised [Recovered/Resolved]
